FAERS Safety Report 19651384 (Version 1)
Quarter: 2021Q3

REPORT INFORMATION
  Report Type: Spontaneous
  Country: US (occurrence: US)
  Receive Date: 20210731
  Receipt Date: 20210731
  Transmission Date: 20211014
  Serious: Yes (Hospitalization)
  Sender: FDA-Public Use
  Company Number: None

PATIENT
  Age: 75 Year
  Sex: Female
  Weight: 55.2 kg

DRUGS (2)
  1. CARBOPLATIN. [Suspect]
     Active Substance: CARBOPLATIN
     Dates: end: 20201210
  2. TAXOL [Suspect]
     Active Substance: PACLITAXEL
     Dates: end: 20201223

REACTIONS (17)
  - Dyspnoea [None]
  - Oxygen saturation decreased [None]
  - White blood cell count decreased [None]
  - Platelet count decreased [None]
  - Pneumonia aspiration [None]
  - Vomiting [None]
  - Blood lactic acid decreased [None]
  - Lung opacity [None]
  - Oesophageal pain [None]
  - Pain [None]
  - Haemoglobin decreased [None]
  - Blood gases abnormal [None]
  - Blood creatinine decreased [None]
  - Nausea [None]
  - Decreased appetite [None]
  - Brain natriuretic peptide increased [None]
  - Fatigue [None]

NARRATIVE: CASE EVENT DATE: 20201230
